FAERS Safety Report 8231876-8 (Version None)
Quarter: 2012Q1

REPORT INFORMATION
  Report Type: 
  Country: None (occurrence: None)
  Receive Date: 20120323
  Receipt Date: 20120312
  Transmission Date: 20120608
  Serious: Yes (Hospitalization, Other)
  Sender: FDA-Public Use
  Company Number: US-JNJFOC-20120306543

PATIENT
  Sex: Female
  Weight: 41.28 kg

DRUGS (20)
  1. SPIRIVA [Concomitant]
     Indication: CHRONIC OBSTRUCTIVE PULMONARY DISEASE
     Route: 055
  2. FLEXERIL [Suspect]
     Indication: MUSCLE TIGHTNESS
     Route: 048
     Dates: end: 20110101
  3. LORTAB [Concomitant]
     Indication: PAIN
     Dosage: 10-325 MG 1-2 TIMES EVERY 4-6 HOURS
     Route: 048
  4. ALBUTEROL [Concomitant]
     Indication: CHRONIC OBSTRUCTIVE PULMONARY DISEASE
     Route: 055
  5. SPIRIVA [Concomitant]
     Indication: ASTHMA
     Route: 055
  6. ALBUTEROL [Concomitant]
     Indication: ASTHMA
     Route: 055
  7. PROAIR HFA [Concomitant]
     Indication: ASTHMA
     Route: 055
  8. DURAGESIC-100 [Suspect]
     Indication: INTERVERTEBRAL DISC DEGENERATION
     Route: 062
     Dates: start: 20100101
  9. FLEXERIL [Suspect]
     Indication: MUSCLE SPASMS
     Route: 048
     Dates: end: 20110101
  10. CRESTOR [Concomitant]
     Indication: BLOOD CHOLESTEROL INCREASED
     Route: 048
  11. CYMBALTA [Concomitant]
     Indication: DEPRESSION
     Route: 048
  12. PREMARIN [Concomitant]
     Indication: OESTROGEN REPLACEMENT THERAPY
     Route: 048
  13. DURAGESIC RESERVOIR [Concomitant]
     Indication: ARTHRITIS
     Dosage: 100+25 MCG
     Route: 062
  14. OMEPRAZOLE [Concomitant]
     Indication: GASTROOESOPHAGEAL REFLUX DISEASE
     Route: 048
  15. DURAGESIC-100 [Suspect]
     Indication: SPINAL FUSION SURGERY
     Route: 062
     Dates: start: 20100101
  16. OXYCONTIN [Suspect]
     Indication: PRODUCT USED FOR UNKNOWN INDICATION
     Dosage: 100+25 MCG
     Route: 065
     Dates: end: 20100101
  17. DURAGESIC RESERVOIR [Concomitant]
     Indication: INTERVERTEBRAL DISC DEGENERATION
     Dosage: 100+25 MCG
     Route: 062
  18. PROMETHAZINE [Concomitant]
     Indication: NAUSEA
     Route: 048
  19. DURAGESIC-100 [Suspect]
     Indication: ARTHRITIS
     Route: 062
     Dates: start: 20100101
  20. PROAIR HFA [Concomitant]
     Indication: CHRONIC OBSTRUCTIVE PULMONARY DISEASE
     Route: 055

REACTIONS (12)
  - OSTEONECROSIS [None]
  - AMNESIA [None]
  - POOR QUALITY DRUG ADMINISTERED [None]
  - DRUG INEFFECTIVE [None]
  - HEADACHE [None]
  - FEELING ABNORMAL [None]
  - PAIN [None]
  - VISUAL IMPAIRMENT [None]
  - WRONG TECHNIQUE IN DRUG USAGE PROCESS [None]
  - PRODUCT QUALITY ISSUE [None]
  - CATARACT [None]
  - INAPPROPRIATE SCHEDULE OF DRUG ADMINISTRATION [None]
